FAERS Safety Report 4557013-9 (Version None)
Quarter: 2005Q1

REPORT INFORMATION
  Report Type: 
  Country: None (occurrence: None)
  Receive Date: 20050118
  Receipt Date: 20050105
  Transmission Date: 20050727
  Serious: Yes (Death)
  Sender: FDA-Public Use
  Company Number: S05-USA-00083-01

PATIENT
  Age: 16 Year
  Sex: Male

DRUGS (2)
  1. LEXAPRO [Suspect]
     Indication: DEPRESSION
     Dosage: 10 MG QD PO
     Route: 048
     Dates: start: 20031014, end: 20031209
  2. LEXAPRO [Suspect]
     Indication: DEPRESSION
     Dosage: 20 MG QD PO
     Route: 048
     Dates: start: 20031210, end: 20040201

REACTIONS (4)
  - COMPLETED SUICIDE [None]
  - GUN SHOT WOUND [None]
  - INTENTIONAL SELF-INJURY [None]
  - SCRATCH [None]
